FAERS Safety Report 10872220 (Version 1)
Quarter: 2015Q1

REPORT INFORMATION
  Report Type: Spontaneous
  Country: US (occurrence: None)
  Receive Date: 20150223
  Receipt Date: 20150223
  Transmission Date: 20150721
  Serious: Yes (Disabling)
  Sender: FDA-Public Use
  Company Number: None

PATIENT
  Age: 63 Year
  Sex: Male
  Weight: 72.58 kg

DRUGS (8)
  1. CALCIUM [Concomitant]
     Active Substance: CALCIUM
  2. VITAMIN C [Concomitant]
     Active Substance: ASCORBIC ACID
  3. FISH OIL [Concomitant]
     Active Substance: FISH OIL
  4. LEVOFLOXACIN. [Suspect]
     Active Substance: LEVOFLOXACIN
     Indication: PROSTATE INFECTION
     Dosage: 1 PILL
     Dates: start: 20150106, end: 20150106
  5. MAGNESIUM [Concomitant]
     Active Substance: MAGNESIUM
  6. MULTI VITAMIN [Concomitant]
     Active Substance: VITAMINS
  7. COENZYME Q10 [Concomitant]
     Active Substance: UBIDECARENONE
  8. ZINC [Concomitant]
     Active Substance: ZINC\ZINC CHLORIDE

REACTIONS (11)
  - Muscle spasms [None]
  - Exercise tolerance decreased [None]
  - Panic attack [None]
  - Decreased appetite [None]
  - Suicidal ideation [None]
  - Tendon pain [None]
  - Quality of life decreased [None]
  - Dyspnoea [None]
  - Weight decreased [None]
  - Asthenia [None]
  - Sleep disorder due to general medical condition, insomnia type [None]

NARRATIVE: CASE EVENT DATE: 20150106
